FAERS Safety Report 23949701 (Version 1)
Quarter: 2024Q2

REPORT INFORMATION
  Report Type: Spontaneous
  Country: HK (occurrence: HK)
  Receive Date: 20240607
  Receipt Date: 20240607
  Transmission Date: 20240716
  Serious: Yes (Other)
  Sender: FDA-Public Use
  Company Number: HK-BAYER-2024A080884

PATIENT
  Age: 71 Year
  Sex: Male
  Weight: 73.469 kg

DRUGS (1)
  1. GADOBUTROL [Suspect]
     Active Substance: GADOBUTROL
     Indication: Magnetic resonance imaging prostate
     Dosage: 15 ML, ONCE
     Dates: start: 20240531, end: 20240531

REACTIONS (6)
  - Contrast media reaction [None]
  - Blood pressure increased [None]
  - Injection site swelling [None]
  - Administration site extravasation [None]
  - Injection site warmth [None]
  - Hypoaesthesia [None]

NARRATIVE: CASE EVENT DATE: 20240531
